FAERS Safety Report 5018278-2 (Version None)
Quarter: 2006Q2

REPORT INFORMATION
  Report Type: 
  Country: None (occurrence: None)
  Receive Date: 20060530
  Receipt Date: 20060518
  Transmission Date: 20061013
  Serious: Yes (Hospitalization, Other)
  Sender: FDA-Public Use
  Company Number: 2006-05-1507

PATIENT
  Age: 55 Year
  Sex: Male
  Weight: 75 kg

DRUGS (3)
  1. PEG-INTERFERON ALFA-2B INJECTABLE [Suspect]
     Indication: HEPATITIS C
     Dosage: 120 MCG QWK; SUBCUTANEOUS
     Route: 058
     Dates: start: 20051028, end: 20060508
  2. RIBAVIRIN [Suspect]
     Indication: HEPATITIS C
     Dosage: 1000 MG QD; ORAL
     Route: 048
     Dates: start: 20051028, end: 20060508
  3. EPREX [Suspect]
     Indication: HAEMOLYTIC ANAEMIA
     Dosage: QWK;
     Dates: start: 20060301

REACTIONS (4)
  - HAEMOLYTIC ANAEMIA [None]
  - SPLENIC INFARCTION [None]
  - TRANSIENT ISCHAEMIC ATTACK [None]
  - VISUAL DISTURBANCE [None]
